FAERS Safety Report 4424189-3 (Version None)
Quarter: 2004Q3

REPORT INFORMATION
  Report Type: 
  Country: None (occurrence: None)
  Receive Date: 20040715
  Receipt Date: 20040512
  Transmission Date: 20050211
  Serious: Yes (Hospitalization)
  Sender: FDA-Public Use
  Company Number: 2001079889US

PATIENT
  Age: 54 Year
  Sex: Female
  Weight: 113.4 kg

DRUGS (3)
  1. CELEBREX [Suspect]
     Indication: CARPAL TUNNEL SYNDROME
     Dosage: 100 MG, BID, ORAL
     Route: 048
     Dates: start: 20010101, end: 20010101
  2. MONOPRIL [Concomitant]
  3. GLUCOPHAGE [Concomitant]

REACTIONS (1)
  - CARDIAC FAILURE CONGESTIVE [None]
